FAERS Safety Report 13293684 (Version 2)
Quarter: 2017Q2

REPORT INFORMATION
  Report Type: Spontaneous
  Country: US (occurrence: US)
  Receive Date: 20170303
  Receipt Date: 20170412
  Transmission Date: 20170830
  Serious: Yes (Hospitalization)
  Sender: FDA-Public Use
  Company Number: US-JNJFOC-20161208556

PATIENT
  Age: 49 Year
  Sex: Male
  Weight: 90.27 kg

DRUGS (1)
  1. XARELTO [Suspect]
     Active Substance: RIVAROXABAN
     Indication: FACTOR V LEIDEN MUTATION
     Dosage: VARYING DOSES OF 20 MG AND 10 MG
     Route: 048
     Dates: start: 20141031, end: 20141219

REACTIONS (3)
  - Off label use [Unknown]
  - Haemoptysis [Recovering/Resolving]
  - Product use in unapproved indication [Unknown]

NARRATIVE: CASE EVENT DATE: 20141031
